FAERS Safety Report 16641543 (Version 1)
Quarter: 2019Q3

REPORT INFORMATION
  Report Type: Spontaneous
  Country: PL (occurrence: PL)
  Receive Date: 20190729
  Receipt Date: 20190729
  Transmission Date: 20191004
  Serious: Yes (Death, Hospitalization, Other)
  Sender: FDA-Public Use
  Company Number: PL-ACCORD-127979

PATIENT
  Age: 64 Year
  Sex: Female

DRUGS (3)
  1. CISPLATIN. [Suspect]
     Active Substance: CISPLATIN
     Indication: SQUAMOUS CELL CARCINOMA OF LUNG
  2. VINORELBINE [Suspect]
     Active Substance: VINORELBINE TARTRATE
     Indication: SQUAMOUS CELL CARCINOMA OF LUNG
  3. HEPARIN [Concomitant]
     Active Substance: HEPARIN SODIUM
     Indication: PULMONARY EMBOLISM

REACTIONS (4)
  - Full blood count decreased [Unknown]
  - Death [Fatal]
  - Blood creatinine increased [Unknown]
  - Nephropathy toxic [Unknown]
